FAERS Safety Report 9880429 (Version 1)
Quarter: 2014Q1

REPORT INFORMATION
  Report Type: Spontaneous
  Country: US (occurrence: None)
  Receive Date: 20140206
  Receipt Date: 20140206
  Transmission Date: 20141002
  Serious: Yes (Other)
  Sender: FDA-Public Use
  Company Number: None

PATIENT
  Age: 47 Year
  Sex: Female

DRUGS (1)
  1. BENGAY [Suspect]
     Indication: BACK PAIN
     Dates: start: 20140202, end: 20140203

REACTIONS (3)
  - Burns second degree [None]
  - Blister [None]
  - Impaired work ability [None]
